FAERS Safety Report 6306680-8 (Version None)
Quarter: 2009Q3

REPORT INFORMATION
  Report Type: 
  Country: None (occurrence: None)
  Receive Date: 20090811
  Receipt Date: 20090811
  Transmission Date: 20100115
  Serious: Yes (Hospitalization)
  Sender: FDA-Public Use
  Company Number: None

PATIENT
  Sex: Male
  Weight: 28.5 kg

DRUGS (4)
  1. CYTARABINE [Suspect]
     Dosage: 2550 MG
  2. DAUNORUBICIN HCL [Suspect]
     Dosage: 159 MG
  3. ETOPOSIDE [Suspect]
     Dosage: 550 MG
  4. MYLOTARG [Suspect]

REACTIONS (12)
  - ASCITES [None]
  - BRONCHIAL SECRETION RETENTION [None]
  - CANDIDIASIS [None]
  - FLUID OVERLOAD [None]
  - HAEMORRHAGE INTRACRANIAL [None]
  - HEPATOSPLENOMEGALY [None]
  - HYPERTENSION [None]
  - NEUTROPENIA [None]
  - PLEURAL EFFUSION [None]
  - PYREXIA [None]
  - RHINORRHOEA [None]
  - XANTHOCHROMIA [None]
